FAERS Safety Report 12786547 (Version 1)
Quarter: 2016Q3

REPORT INFORMATION
  Report Type: Spontaneous
  Country: US (occurrence: US)
  Receive Date: 20160924
  Receipt Date: 20160924
  Transmission Date: 20161109
  Serious: Yes (Hospitalization)
  Sender: FDA-Public Use
  Company Number: None

PATIENT
  Age: 63 Year
  Sex: Female
  Weight: 71 kg

DRUGS (2)
  1. CARBOPLATIN. [Suspect]
     Active Substance: CARBOPLATIN
     Dates: end: 20160901
  2. TAXOL [Suspect]
     Active Substance: PACLITAXEL
     Dates: end: 20160901

REACTIONS (1)
  - Neutropenia [None]

NARRATIVE: CASE EVENT DATE: 20160914
